FAERS Safety Report 13904797 (Version 4)
Quarter: 2018Q3

REPORT INFORMATION
  Report Type: Spontaneous
  Country: KR (occurrence: KR)
  Receive Date: 20170825
  Receipt Date: 20180816
  Transmission Date: 20181010
  Serious: Yes (Hospitalization)
  Sender: FDA-Public Use
  Company Number: KR-ACTELION-A-CH2017-158211

PATIENT
  Age: 71 Year
  Sex: Female
  Weight: 63 kg

DRUGS (10)
  1. OPSUMIT [Suspect]
     Active Substance: MACITENTAN
     Indication: PULMONARY ARTERIAL HYPERTENSION
     Dosage: 10 MG, OD
     Route: 048
     Dates: start: 20170415
  2. TACROBELL [Concomitant]
     Active Substance: TACROLIMUS
     Dosage: 2 DF, QD
     Route: 048
  3. CELEBREX [Concomitant]
     Active Substance: CELECOXIB
     Dosage: 400 MG, QD
     Route: 048
  4. MUNOBAL [Concomitant]
     Active Substance: FELODIPINE
     Dosage: 5 MG, QD
     Route: 048
  5. TORA [Concomitant]
     Dosage: 1.25 MG, QD
     Route: 048
     Dates: start: 20170427
  6. SOLONDO [Concomitant]
     Active Substance: PREDNISOLONE
     Dosage: 20 MG, UNK
     Route: 048
  7. SARAZOPYRIN EN [Concomitant]
     Dosage: 2000 MG, QD
     Route: 048
  8. DICAMAX [Concomitant]
     Dosage: 1 UNK, UNK
     Route: 048
  9. CURAN [Concomitant]
     Active Substance: RANITIDINE HYDROCHLORIDE
     Indication: PROPHYLAXIS
     Dosage: 75 MG, UNK
     Route: 048
  10. STILLEN [Concomitant]
     Dosage: 120 MG, QD
     Route: 048

REACTIONS (4)
  - Nerve block [Recovered/Resolved]
  - Lumbar spinal stenosis [Recovered/Resolved]
  - Pain in extremity [Recovered/Resolved]
  - Limb discomfort [Recovered/Resolved]

NARRATIVE: CASE EVENT DATE: 20170809
